FAERS Safety Report 5474654-5 (Version None)
Quarter: 2007Q4

REPORT INFORMATION
  Report Type: 
  Country: None (occurrence: None)
  Receive Date: 20071002
  Receipt Date: 20070918
  Transmission Date: 20080405
  Serious: Yes (Hospitalization, Other)
  Sender: FDA-Public Use
  Company Number: DE-ELI_LILLY_AND_COMPANY-DE200708001860

PATIENT
  Age: 45 Year
  Sex: Female
  Weight: 80 kg

DRUGS (5)
  1. DULOXETINE HYDROCHLORIDE [Suspect]
     Dosage: 1800 MG, AT ONCE
     Route: 048
     Dates: start: 20070804, end: 20070804
  2. MIRTAZAPINE [Concomitant]
     Dosage: 600 MG, AT ONCE
     Route: 048
     Dates: start: 20070804, end: 20070804
  3. PIPAMPERONE [Concomitant]
     Dosage: 1760 MG, AT ONCE
     Route: 048
     Dates: start: 20070804, end: 20070804
  4. ALCOHOL [Concomitant]
     Dosage: 1000 ML, AT ONCE
     Route: 048
     Dates: start: 20070804, end: 20070804
  5. TREVILOR [Concomitant]
     Dosage: 3000 MG, AT ONCE
     Route: 048
     Dates: start: 20070804, end: 20070804

REACTIONS (4)
  - ASPIRATION [None]
  - INTENTIONAL OVERDOSE [None]
  - INTENTIONAL SELF-INJURY [None]
  - SOMNOLENCE [None]
